FAERS Safety Report 6426249-4 (Version None)
Quarter: 2009Q4

REPORT INFORMATION
  Report Type: 
  Country: None (occurrence: None)
  Receive Date: 20091104
  Receipt Date: 20091029
  Transmission Date: 20100525
  Serious: Yes (Other)
  Sender: FDA-Public Use
  Company Number: CH-BRISTOL-MYERS SQUIBB COMPANY-14838494

PATIENT
  Age: 37 Year
  Sex: Female

DRUGS (17)
  1. DAFALGAN [Suspect]
     Indication: PAIN
  2. ACETYLSALICYLIC ACID [Suspect]
     Indication: PAIN
  3. AMOXICILLIN [Suspect]
     Dates: start: 20090805, end: 20090810
  4. EXCEDRIN (MIGRAINE) [Suspect]
  5. DEPAKENE [Suspect]
     Indication: BIPOLAR DISORDER
  6. FLUOXETINE [Suspect]
     Indication: BIPOLAR DISORDER
  7. SEROQUEL [Suspect]
     Dates: start: 20060101
  8. RIVOTRIL [Suspect]
     Indication: ANXIETY DISORDER
  9. SIFROL [Suspect]
     Indication: EXTRAPYRAMIDAL DISORDER
  10. SIFROL [Suspect]
     Indication: MOVEMENT DISORDER
  11. MEFENAMIC ACID [Suspect]
     Indication: PAIN
     Dates: start: 20090805
  12. ORLISTAT [Suspect]
  13. LAXOBERON [Suspect]
     Indication: CONSTIPATION
  14. LEVONORGESTREL [Suspect]
     Dates: start: 20090629, end: 20090630
  15. ONOTON [Suspect]
  16. IRON [Concomitant]
     Indication: ANAEMIA
     Dates: start: 20090722, end: 20090722
  17. SUPRADYN [Concomitant]

REACTIONS (2)
  - ABORTION INDUCED [None]
  - PREGNANCY [None]
